FAERS Safety Report 7458516-X (Version None)
Quarter: 2011Q2

REPORT INFORMATION
  Report Type: 
  Country: None (occurrence: None)
  Receive Date: 20110504
  Receipt Date: 20110420
  Transmission Date: 20111010
  Serious: Yes (Other)
  Sender: FDA-Public Use
  Company Number: BR-GENENTECH-317473

PATIENT
  Age: 40 Year
  Sex: Female

DRUGS (3)
  1. OXCARBAZEPINE [Concomitant]
     Indication: NEUROMYELITIS OPTICA
     Dosage: UNK
     Dates: start: 20110201
  2. LYRICA [Concomitant]
     Indication: NEUROMYELITIS OPTICA
     Dosage: UNK
     Dates: start: 20110201
  3. MABTHERA [Suspect]
     Indication: NEUROMYELITIS OPTICA
     Dosage: UNK
     Route: 065
     Dates: start: 20100201, end: 20100201

REACTIONS (1)
  - NEUROMYELITIS OPTICA [None]
